FAERS Safety Report 10765915 (Version 1)
Quarter: 2015Q1

REPORT INFORMATION
  Report Type: Spontaneous
  Country: US (occurrence: None)
  Receive Date: 20150204
  Receipt Date: 20150204
  Transmission Date: 20150721
  Serious: No
  Sender: FDA-Public Use
  Company Number: None

PATIENT
  Age: 70 Year
  Sex: Male
  Weight: 113.4 kg

DRUGS (9)
  1. DOXAZOSIN MESYLATE. [Suspect]
     Active Substance: DOXAZOSIN MESYLATE
     Indication: LYME DISEASE
     Dosage: ONE PILL, ONCE IN PM
     Route: 048
     Dates: start: 20121106, end: 201402
  2. MELATONIN [Concomitant]
     Active Substance: MELATONIN
  3. VIT. A-ZINC [Concomitant]
  4. HYDROCLURIZE [Concomitant]
  5. LUTEIN [Concomitant]
     Active Substance: LUTEIN
  6. DOXAZOSIN MESYLATE. [Suspect]
     Active Substance: DOXAZOSIN MESYLATE
     Indication: PROSTATE CANCER
     Dosage: ONE PILL, ONCE IN PM
     Route: 048
     Dates: start: 20121106, end: 201402
  7. DOXAZOSIN MESYLATE. [Suspect]
     Active Substance: DOXAZOSIN MESYLATE
     Indication: DYSURIA
     Dosage: ONE PILL, ONCE IN PM
     Route: 048
     Dates: start: 20121106, end: 201402
  8. LUMIGAN [Concomitant]
     Active Substance: BIMATOPROST
  9. MAGNESIUM [Concomitant]
     Active Substance: MAGNESIUM

REACTIONS (1)
  - Arthritis [None]
